FAERS Safety Report 14276292 (Version 1)
Quarter: 2017Q4

REPORT INFORMATION
  Report Type: Spontaneous
  Country: VN (occurrence: VN)
  Receive Date: 20171212
  Receipt Date: 20171212
  Transmission Date: 20180321
  Serious: Yes (Hospitalization)
  Sender: FDA-Public Use
  Company Number: VN-ROCHE-2033728

PATIENT
  Sex: Female
  Weight: 72 kg

DRUGS (5)
  1. ACTEMRA [Suspect]
     Active Substance: TOCILIZUMAB
     Indication: RHEUMATOID ARTHRITIS
     Route: 042
  2. METHOTREXATE. [Suspect]
     Active Substance: METHOTREXATE
     Dosage: 7 TABLETS
     Route: 065
  3. ACTEMRA [Suspect]
     Active Substance: TOCILIZUMAB
     Route: 042
  4. METHOTREXATE. [Suspect]
     Active Substance: METHOTREXATE
     Indication: RHEUMATOID ARTHRITIS
     Dosage: 6 TABLETS
     Route: 065
  5. MEDROL [Suspect]
     Active Substance: METHYLPREDNISOLONE
     Indication: RHEUMATOID ARTHRITIS
     Route: 065

REACTIONS (1)
  - Osteoarthritis [Recovered/Resolved with Sequelae]
